FAERS Safety Report 5333137-3 (Version None)
Quarter: 2007Q2

REPORT INFORMATION
  Report Type: 
  Country: None (occurrence: None)
  Receive Date: 20070521
  Receipt Date: 20070509
  Transmission Date: 20071010
  Serious: Yes (Death, Life-Threatening, Hospitalization, Other)
  Sender: FDA-Public Use
  Company Number: 07042069

PATIENT
  Age: 85 Year
  Sex: Female

DRUGS (2)
  1. AMIODARONE HYDROCHLORIDE [Suspect]
     Indication: ATRIAL FIBRILLATION
     Dosage: 200MG, QD, ORAL
     Route: 048
     Dates: end: 20070221
  2. WARFARIN SODIUM [Suspect]
     Indication: ATRIAL FIBRILLATION
     Dosage: 1 MG, QD, ORAL
     Route: 048
     Dates: end: 20070221

REACTIONS (3)
  - BLOOD PRESSURE INCREASED [None]
  - COMA [None]
  - HAEMORRHAGE INTRACRANIAL [None]
